FAERS Safety Report 7486103-6 (Version None)
Quarter: 2011Q2

REPORT INFORMATION
  Report Type: 
  Country: None (occurrence: None)
  Receive Date: 20110517
  Receipt Date: 20110512
  Transmission Date: 20111010
  Serious: Yes (Death, Other)
  Sender: FDA-Public Use
  Company Number: PHHY2011DE40426

PATIENT
  Sex: Female

DRUGS (6)
  1. ZOMETA [Suspect]
     Indication: BONE DISORDER
     Dosage: 4 MG, UNK
     Route: 042
     Dates: start: 20110119
  2. METAMIZOL [Concomitant]
  3. FEMARA [Concomitant]
     Dosage: 2.5 MG, UNK
     Dates: start: 20110118
  4. ENOXAPARIN SODIUM [Concomitant]
     Dosage: 800 IU, UNK
     Dates: start: 20050101
  5. FENTANYL [Concomitant]
  6. ZOMETA [Suspect]
     Dosage: 4MG
     Route: 042
     Dates: start: 20110401

REACTIONS (2)
  - DEATH [None]
  - GENERAL PHYSICAL HEALTH DETERIORATION [None]
